FAERS Safety Report 9831493 (Version 1)
Quarter: 2014Q1

REPORT INFORMATION
  Report Type: Spontaneous
  Country: US (occurrence: US)
  Receive Date: 20140121
  Receipt Date: 20140121
  Transmission Date: 20141002
  Serious: No
  Sender: FDA-Public Use
  Company Number: US-BAYER-2014-010067

PATIENT
  Sex: Female

DRUGS (1)
  1. BETASERON [Suspect]
     Indication: MULTIPLE SCLEROSIS
     Dosage: 200 UNK, UNK
     Route: 058
     Dates: start: 1999

REACTIONS (10)
  - Stress [None]
  - Clumsiness [None]
  - Influenza like illness [None]
  - Erythema [None]
  - Alopecia [None]
  - Hypertension [None]
  - Fall [Recovered/Resolved]
  - Eczema [None]
  - Feeling hot [None]
  - Anxiety [None]
